FAERS Safety Report 10367684 (Version 5)
Quarter: 2014Q4

REPORT INFORMATION
  Report Type: Spontaneous
  Country: US (occurrence: US)
  Receive Date: 20140807
  Receipt Date: 20141008
  Transmission Date: 20150528
  Serious: Yes (Life-Threatening, Hospitalization, Other)
  Sender: FDA-Public Use
  Company Number: US-009507513-1408USA003002

PATIENT
  Sex: Male
  Weight: 73.47 kg

DRUGS (1)
  1. JANUVIA [Suspect]
     Active Substance: SITAGLIPTIN PHOSPHATE
     Indication: TYPE 2 DIABETES MELLITUS
     Dosage: 50 MG, QD
     Route: 048
     Dates: start: 20120118, end: 20121214

REACTIONS (34)
  - Thrombocytopenia [Unknown]
  - Varices oesophageal [Unknown]
  - Gallbladder disorder [Unknown]
  - Gastrooesophageal reflux disease [Unknown]
  - Accident [Unknown]
  - Vitamin D deficiency [Unknown]
  - Upper respiratory tract inflammation [Unknown]
  - Laparotomy [Unknown]
  - Hypokalaemia [Unknown]
  - Vomiting [Unknown]
  - Diarrhoea [Unknown]
  - Bile duct stent insertion [Unknown]
  - Splenic vein thrombosis [Unknown]
  - Hyperadrenalism [Unknown]
  - Lower respiratory tract inflammation [Unknown]
  - Rotator cuff syndrome [Unknown]
  - Pancreatic carcinoma metastatic [Unknown]
  - Rotator cuff repair [Unknown]
  - Eye excision [Unknown]
  - Hypertension [Unknown]
  - Metastases to liver [Unknown]
  - Diverticulitis [Unknown]
  - Spinal operation [Unknown]
  - Appendicitis [Unknown]
  - Hepatic function abnormal [Unknown]
  - Pancreatitis [Unknown]
  - Nausea [Unknown]
  - Intervertebral disc protrusion [Unknown]
  - Constipation [Unknown]
  - Metastases to gastrointestinal tract [Unknown]
  - Hepatectomy [Unknown]
  - Infectious colitis [Unknown]
  - Adenotonsillectomy [Unknown]
  - Peptic ulcer [Unknown]

NARRATIVE: CASE EVENT DATE: 201211
